FAERS Safety Report 9228668 (Version 1)
Quarter: 2013Q1

REPORT INFORMATION
  Report Type: Spontaneous
  Country: US (occurrence: None)
  Receive Date: 20121026
  Receipt Date: 20121026
  Transmission Date: 20140127
  Serious: Yes (Death)
  Sender: FDA-Public Use
  Company Number: 2012POI057500085

PATIENT
  Sex: 0

DRUGS (5)
  1. ROXICODONE [Suspect]
  2. OXYCONTIN [Suspect]
  3. METHADONE [Suspect]
  4. COCAINE [Suspect]
  5. ALCOHOL [Suspect]

REACTIONS (1)
  - Overdose [None]
